FAERS Safety Report 13093881 (Version 2)
Quarter: 2017Q1

REPORT INFORMATION
  Report Type: Report from Study
  Country: US (occurrence: US)
  Receive Date: 20170106
  Receipt Date: 20170125
  Transmission Date: 20170428
  Serious: Yes (Other)
  Sender: FDA-Public Use
  Company Number: US-BAYER-2016-244243

PATIENT
  Age: 83 Year
  Sex: Male

DRUGS (2)
  1. NEXAVAR [Suspect]
     Active Substance: SORAFENIB
     Indication: HEPATOCELLULAR CARCINOMA
     Dosage: 200 MG, BID (2X200 MG)
     Route: 048
     Dates: start: 20161126
  2. NEXAVAR [Suspect]
     Active Substance: SORAFENIB
     Indication: HEPATOCELLULAR CARCINOMA
     Dosage: 400 MG, BID
     Route: 048
     Dates: start: 20161118

REACTIONS (9)
  - Insomnia [Not Recovered/Not Resolved]
  - Dysgraphia [Unknown]
  - Decreased appetite [Unknown]
  - Fatigue [Not Recovered/Not Resolved]
  - Speech disorder [Unknown]
  - Musculoskeletal disorder [None]
  - Abasia [None]
  - Asthenia [Not Recovered/Not Resolved]
  - Muscle fatigue [None]

NARRATIVE: CASE EVENT DATE: 2016
